FAERS Safety Report 5040809-7 (Version None)
Quarter: 2006Q2

REPORT INFORMATION
  Report Type: 
  Country: None (occurrence: None)
  Receive Date: 20060601
  Receipt Date: 20060302
  Transmission Date: 20061013
  Serious: No
  Sender: FDA-Public Use
  Company Number: 2006PV009597

PATIENT
  Age: 55 Year
  Sex: Female
  Weight: 153.7694 kg

DRUGS (5)
  1. BYETTA [Suspect]
     Indication: DIABETES MELLITUS NON-INSULIN-DEPENDENT
     Dosage: 10 MCG;BID;SC; 5 MCG;BID;SC
     Route: 058
     Dates: start: 20060109, end: 20060227
  2. BYETTA [Suspect]
     Indication: DIABETES MELLITUS NON-INSULIN-DEPENDENT
     Dosage: 10 MCG;BID;SC; 5 MCG;BID;SC
     Route: 058
     Dates: start: 20060228
  3. HUMALOG [Concomitant]
  4. LANTUS [Concomitant]
  5. GLYBURIDE AND METFORMIN HCL [Concomitant]

REACTIONS (6)
  - DRY MOUTH [None]
  - HYPERTROPHY [None]
  - HYPERTROPHY OF TONGUE PAPILLAE [None]
  - PHARYNGITIS [None]
  - TOOTH DEPOSIT [None]
  - VAGINAL HAEMORRHAGE [None]
